FAERS Safety Report 4811704-0 (Version None)
Quarter: 2005Q4

REPORT INFORMATION
  Report Type: 
  Country: None (occurrence: None)
  Receive Date: 20051025
  Receipt Date: 20051014
  Transmission Date: 20060501
  Serious: Yes (Hospitalization, Other)
  Sender: FDA-Public Use
  Company Number: 2005143613

PATIENT
  Age: 55 Year
  Sex: Female

DRUGS (9)
  1. XANAX [Suspect]
     Indication: DEPRESSION
  2. PEG-INTRON [Suspect]
     Indication: HEPATITIS C
     Dosage: 120 MCG (1 IN 1 WK), SUBCUTANEOUS
     Route: 058
     Dates: start: 20030418, end: 20030421
  3. REBETOL [Suspect]
     Indication: HEPATITIS C
     Dosage: 1000 MG (1 IN 1 D), ORAL
     Route: 048
     Dates: start: 20030418, end: 20030421
  4. AMITRIPTYLINE HCL [Suspect]
     Indication: DEPRESSION
  5. LORAMET (LORMETAZEPAM) [Concomitant]
  6. BETASERC (BETAHISTINE HYDROCHLORIDE) [Concomitant]
  7. ZURCAL (PANTOPRAZOLE SODIUM) [Concomitant]
  8. CITALOPRAM HYDROBROMIDE [Concomitant]
  9. MEBEVERINE [Concomitant]

REACTIONS (4)
  - CONDITION AGGRAVATED [None]
  - DEPRESSION [None]
  - DRUG TOXICITY [None]
  - EPILEPSY [None]
